FAERS Safety Report 6810918-8 (Version None)
Quarter: 2010Q2

REPORT INFORMATION
  Report Type: 
  Country: None (occurrence: None)
  Receive Date: 20100630
  Receipt Date: 20081001
  Transmission Date: 20101027
  Serious: No
  Sender: FDA-Public Use
  Company Number: US-PFIZER INC-2008082112

PATIENT
  Sex: Female
  Weight: 56.7 kg

DRUGS (1)
  1. ESTRING [Suspect]
     Dates: start: 20080918

REACTIONS (2)
  - DEVICE EXPULSION [None]
  - VULVOVAGINAL DISCOMFORT [None]
